FAERS Safety Report 9500050 (Version 1)
Quarter: 2013Q1

REPORT INFORMATION
  Report Type: Spontaneous
  Country: US (occurrence: None)
  Receive Date: 20130107
  Receipt Date: 20130107
  Transmission Date: 20140127
  Serious: No
  Sender: FDA-Public Use
  Company Number: PHEH2012US022703

PATIENT
  Sex: Female
  Weight: 95.2 kg

DRUGS (2)
  1. GILENYA (FINGOLIMOD) CAPSULE [Suspect]
     Route: 048
  2. LEVOTHYROXIN (LEVOTHYROXINE SODIUM) [Concomitant]

REACTIONS (3)
  - Pain in jaw [None]
  - Hypoaesthesia oral [None]
  - Visual impairment [None]
